FAERS Safety Report 4548115-1 (Version None)
Quarter: 2004Q4

REPORT INFORMATION
  Report Type: 
  Country: None (occurrence: None)
  Receive Date: 20041220
  Receipt Date: 20040813
  Transmission Date: 20050328
  Serious: Yes (Other)
  Sender: FDA-Public Use
  Company Number: CEL-2004-01584-ROC

PATIENT
  Age: 42 Year
  Sex: Male

DRUGS (3)
  1. ZAROXOLYN [Suspect]
     Indication: DIURETIC THERAPY
     Dosage: 2.5MG TWICE DAILY, ROUTE PO
     Route: 048
  2. LASIX [Suspect]
     Indication: DIURETIC THERAPY
     Dosage: 240MG QAM ROUTE PO
     Route: 048
  3. NATRECOR [Suspect]
     Indication: CARDIAC FAILURE
     Dosage: DOSE UNKNOWN, TWICE WEEKLY, IV
     Route: 042

REACTIONS (1)
  - HYPOKALAEMIA [None]
